FAERS Safety Report 6340283-4 (Version None)
Quarter: 2009Q3

REPORT INFORMATION
  Report Type: 
  Country: None (occurrence: None)
  Receive Date: 20090902
  Receipt Date: 20090824
  Transmission Date: 20100115
  Serious: Yes (Hospitalization)
  Sender: FDA-Public Use
  Company Number: CIP09001580

PATIENT
  Age: 72 Year
  Sex: Female
  Weight: 51 kg

DRUGS (7)
  1. ACTONEL [Suspect]
     Indication: OSTEOPOROSIS PROPHYLAXIS
     Dosage: 35 MG ONCE WEEKLY, ORAL
     Route: 048
     Dates: start: 20090614, end: 20090614
  2. ACTONEL [Suspect]
     Indication: OSTEOPOROSIS PROPHYLAXIS
     Dosage: 35 MG ONCE WEEKLY, ORAL
     Route: 048
     Dates: start: 20090705, end: 20090809
  3. PANTOPRAZOLE SODIUM [Concomitant]
  4. COVERSYL /00790701/ (PERINDOPRIL) [Concomitant]
  5. CALCIUM (CALCIUM) [Concomitant]
  6. ERGOCALCIFEROL [Concomitant]
  7. IRON + VITAMIN C /01766801/ (ASCORBIC ACID, IRON) [Concomitant]

REACTIONS (13)
  - ABDOMINAL DISCOMFORT [None]
  - ANGLE CLOSURE GLAUCOMA [None]
  - BACK PAIN [None]
  - DIARRHOEA [None]
  - EYE INFECTION VIRAL [None]
  - HEADACHE [None]
  - INCORRECT DOSE ADMINISTERED [None]
  - IRITIS [None]
  - MUSCLE SPASMS [None]
  - MYALGIA [None]
  - NECK PAIN [None]
  - OCULAR HYPERAEMIA [None]
  - PAIN IN EXTREMITY [None]
